FAERS Safety Report 4748989-5 (Version None)
Quarter: 2005Q3

REPORT INFORMATION
  Report Type: 
  Country: None (occurrence: None)
  Receive Date: 20050817
  Receipt Date: 20050809
  Transmission Date: 20060218
  Serious: Yes (Other)
  Sender: FDA-Public Use
  Company Number: 2005113604

PATIENT
  Age: 60 Year
  Sex: Male

DRUGS (6)
  1. LIPITOR [Suspect]
     Indication: HYPERLIPIDAEMIA
     Dosage: 10 MG (DAILY), ORAL
     Route: 048
     Dates: start: 20050704, end: 20050707
  2. ENALAPRIL MALEATE [Concomitant]
  3. ADALAT [Concomitant]
  4. DORNER (BERAPROST SODIUM) [Concomitant]
  5. ASPIRIN [Concomitant]
  6. FAMOTIDINE [Concomitant]

REACTIONS (4)
  - BLOOD CREATINE PHOSPHOKINASE INCREASED [None]
  - BLOOD CREATINE PHOSPHOKINASE MB INCREASED [None]
  - CORONARY ARTERY STENOSIS [None]
  - RHABDOMYOLYSIS [None]
